FAERS Safety Report 4335592-4 (Version None)
Quarter: 2004Q2

REPORT INFORMATION
  Report Type: 
  Country: None (occurrence: None)
  Receive Date: 20040409
  Receipt Date: 20040324
  Transmission Date: 20050107
  Serious: Yes (Death, Disabling)
  Sender: FDA-Public Use
  Company Number: HU-MERCK-0403HUN00032

PATIENT
  Age: 57 Year
  Sex: Female

DRUGS (5)
  1. FOSAMAX [Suspect]
     Indication: OSTEOPOROSIS
     Route: 065
     Dates: start: 19940101, end: 19940101
  2. CALCITONIN [Concomitant]
     Indication: OSTEOPOROSIS
     Route: 065
  3. CALCIUM (UNSPECIFIED) [Concomitant]
     Indication: OSTEOPOROSIS
     Route: 065
  4. URSODIOL [Concomitant]
     Indication: OSTEOPOROSIS
     Route: 065
  5. VITAMIN D (UNSPECIFIED) [Concomitant]
     Indication: OSTEOPOROSIS
     Route: 065

REACTIONS (4)
  - CACHEXIA [None]
  - HEPATIC NEOPLASM MALIGNANT [None]
  - HIP FRACTURE [None]
  - SPINAL COMPRESSION FRACTURE [None]
